FAERS Safety Report 5373910-9 (Version None)
Quarter: 2007Q2

REPORT INFORMATION
  Report Type: 
  Country: None (occurrence: None)
  Receive Date: 20070628
  Receipt Date: 20070619
  Transmission Date: 20071010
  Serious: Yes (Other)
  Sender: FDA-Public Use
  Company Number: US-PFIZER INC-2007051579

PATIENT
  Sex: Female
  Weight: 67.272 kg

DRUGS (5)
  1. CHANTIX [Suspect]
     Indication: SMOKING CESSATION THERAPY
     Dates: start: 20070526, end: 20070101
  2. DEPAKOTE [Concomitant]
  3. LEXAPRO [Concomitant]
  4. VITAMIN CAP [Concomitant]
  5. TYLENOL [Concomitant]

REACTIONS (3)
  - LOSS OF CONSCIOUSNESS [None]
  - MOOD ALTERED [None]
  - PETIT MAL EPILEPSY [None]
